FAERS Safety Report 8851274 (Version 2)
Quarter: 2013Q2

REPORT INFORMATION
  Report Type: Spontaneous
  Country: DK (occurrence: DK)
  Receive Date: 20121019
  Receipt Date: 20130402
  Transmission Date: 20140414
  Serious: Yes (Death, Other)
  Sender: FDA-Public Use
  Company Number: PHHY2012DK092183

PATIENT
  Age: 32 Year
  Sex: Female
  Weight: 92 kg

DRUGS (5)
  1. NOVYNETTE [Suspect]
     Indication: CONTRACEPTION
     Dosage: 1 DF, QD
     Route: 048
     Dates: start: 20080416, end: 201204
  2. NOVYNETTE [Suspect]
     Dosage: 1 DF, QD
     Route: 048
     Dates: start: 20120530
  3. MALONETTA [Suspect]
     Indication: CONTRACEPTION
     Dosage: 1 DF, QD
     Route: 048
     Dates: start: 201204, end: 20120529
  4. MALONETTA [Suspect]
  5. IMIGRAN [Concomitant]
     Indication: MIGRAINE
     Dates: start: 20080104

REACTIONS (8)
  - Acute myocardial infarction [Fatal]
  - Cardiac tamponade [Fatal]
  - Myocardial rupture [Fatal]
  - Coronary artery thrombosis [Fatal]
  - Chest pain [Fatal]
  - Migraine [Unknown]
  - Dizziness [Unknown]
  - Nausea [Unknown]
